FAERS Safety Report 6977031-0 (Version None)
Quarter: 2010Q3

REPORT INFORMATION
  Report Type: 
  Country: None (occurrence: None)
  Receive Date: 20100910
  Receipt Date: 20100903
  Transmission Date: 20110219
  Serious: Yes (Other)
  Sender: FDA-Public Use
  Company Number: US-ROCHE-725563

PATIENT
  Sex: Female
  Weight: 67.1 kg

DRUGS (7)
  1. BONIVA [Suspect]
     Indication: OSTEOPENIA
     Route: 048
  2. LANOXIN [Concomitant]
  3. RYTHMOL [Concomitant]
  4. CALCIUM [Concomitant]
  5. ASCORBIC ACID [Concomitant]
  6. VITAMIN E [Concomitant]
  7. EVENING PRIMROSE [Concomitant]
     Dates: start: 20050101

REACTIONS (3)
  - LYMPHOEDEMA [None]
  - PAIN IN EXTREMITY [None]
  - TENDON RUPTURE [None]
